FAERS Safety Report 12046703 (Version 1)
Quarter: 2016Q1

REPORT INFORMATION
  Report Type: Spontaneous
  Country: US (occurrence: US)
  Receive Date: 20160209
  Receipt Date: 20160209
  Transmission Date: 20160526
  Serious: Yes (Hospitalization, Other)
  Sender: FDA-Public Use
  Company Number: US-PFIZER INC-2016064130

PATIENT
  Age: 57 Year
  Sex: Female
  Weight: 72.57 kg

DRUGS (3)
  1. LYRICA [Suspect]
     Active Substance: PREGABALIN
     Indication: NEURALGIA
     Dosage: 150 MG, 4X/DAY
     Route: 048
     Dates: start: 2013
  2. ATENOLOL. [Concomitant]
     Active Substance: ATENOLOL
     Indication: HYPERTENSION
     Dosage: 100 MG, DAILY
  3. LYRICA [Suspect]
     Active Substance: PREGABALIN
     Indication: CHRONIC INFLAMMATORY DEMYELINATING POLYRADICULONEUROPATHY

REACTIONS (13)
  - Asthenia [Recovering/Resolving]
  - Hyperhidrosis [Recovered/Resolved]
  - Dyspnoea [Unknown]
  - Product use issue [Unknown]
  - Blood pressure increased [Recovering/Resolving]
  - Abasia [Recovering/Resolving]
  - Pain [Recovering/Resolving]
  - Inflammation [Recovering/Resolving]
  - Hypoaesthesia [Recovering/Resolving]
  - Drug withdrawal syndrome [Recovering/Resolving]
  - Drug dose omission [Unknown]
  - Paraesthesia [Recovering/Resolving]
  - Insomnia [Unknown]
